FAERS Safety Report 6288092-9 (Version None)
Quarter: 2009Q3

REPORT INFORMATION
  Report Type: 
  Country: None (occurrence: None)
  Receive Date: 20090729
  Receipt Date: 20080603
  Transmission Date: 20100115
  Serious: No
  Sender: FDA-Public Use
  Company Number: A0732463A

PATIENT
  Sex: Female

DRUGS (1)
  1. ZANTAC [Suspect]
     Indication: DRUG USE FOR UNKNOWN INDICATION
     Dosage: 150MG SINGLE DOSE
     Route: 048

REACTIONS (5)
  - BURNING SENSATION [None]
  - EMOTIONAL DISTRESS [None]
  - GLOSSODYNIA [None]
  - MALAISE [None]
  - ORAL DISCOMFORT [None]
